FAERS Safety Report 7350620-X (Version None)
Quarter: 2011Q1

REPORT INFORMATION
  Report Type: 
  Country: None (occurrence: None)
  Receive Date: 20110314
  Receipt Date: 20110228
  Transmission Date: 20110831
  Serious: Yes (Other)
  Sender: FDA-Public Use
  Company Number: FR-KINGPHARMUSA00001-K201100214

PATIENT
  Age: 64 Year
  Sex: Male

DRUGS (7)
  1. BISOPROLOL FUMARATE [Suspect]
     Dosage: 3.75 MG, QD
     Route: 048
     Dates: start: 20100115, end: 20110114
  2. PLAVIX [Concomitant]
     Dosage: 75 MG, UNK
     Route: 048
     Dates: start: 20100115, end: 20110114
  3. PANTOPRAZOLE [Concomitant]
     Dosage: 40 MG, UNK
     Route: 048
     Dates: start: 20100115, end: 20110114
  4. ALTACE [Suspect]
     Dosage: 1.25 MG, QD
     Route: 048
     Dates: start: 20100115, end: 20110114
  5. CARVASIN [Suspect]
     Dosage: 5 MG, PRN
     Route: 048
     Dates: start: 20100115, end: 20110114
  6. ATORVASTATIN [Concomitant]
     Dosage: 80 MG, UNK
     Route: 048
     Dates: start: 20100115, end: 20110114
  7. ACETYLSALICYLIC ACID [Concomitant]
     Dosage: 100 MG, UNK
     Route: 048
     Dates: start: 20100115, end: 20110114

REACTIONS (3)
  - HYPOTENSION [None]
  - BRADYCARDIA [None]
  - SYNCOPE [None]
